FAERS Safety Report 9274645 (Version 1)
Quarter: 2013Q2

REPORT INFORMATION
  Report Type: Spontaneous
  Country: US (occurrence: None)
  Receive Date: 20130429
  Receipt Date: 20130429
  Transmission Date: 20140414
  Serious: Yes (Other)
  Sender: FDA-Public Use
  Company Number: 2013SA041678

PATIENT
  Age: 14 Year
  Sex: Female

DRUGS (1)
  1. ICY HOT MEDICATED SPRAY [Suspect]
     Indication: JOINT INJURY
     Dates: start: 20130418

REACTIONS (2)
  - Thermal burn [None]
  - Blister [None]
